FAERS Safety Report 24961702 (Version 2)
Quarter: 2025Q2

REPORT INFORMATION
  Report Type: Spontaneous
  Country: NO (occurrence: NO)
  Receive Date: 20250212
  Receipt Date: 20250514
  Transmission Date: 20250717
  Serious: Yes (Hospitalization, Other)
  Sender: GLAXOSMITHKLINE
  Company Number: NO-GSK-NO2025EME015624

PATIENT

DRUGS (5)
  1. LAMICTAL [Suspect]
     Active Substance: LAMOTRIGINE
     Indication: Bipolar disorder
     Dates: start: 20100805, end: 20230610
  2. RISPERDAL [Suspect]
     Active Substance: RISPERIDONE
     Indication: Nightmare
     Dates: end: 20210326
  3. VALPROATE SODIUM [Suspect]
     Active Substance: VALPROATE SODIUM
     Indication: Product used for unknown indication
  4. ZOLOFT [Suspect]
     Active Substance: SERTRALINE HYDROCHLORIDE
     Indication: Product used for unknown indication
  5. ABILIFY [Suspect]
     Active Substance: ARIPIPRAZOLE
     Indication: Product used for unknown indication

REACTIONS (18)
  - Chest pain [Not Recovered/Not Resolved]
  - Gastric ulcer [Unknown]
  - Ataxia [Unknown]
  - Tremor [Unknown]
  - Bone pain [Unknown]
  - Fall [Unknown]
  - Injury [Unknown]
  - Amnesia [Not Recovered/Not Resolved]
  - Memory impairment [Unknown]
  - Headache [Unknown]
  - Fatigue [Unknown]
  - Asthenia [Unknown]
  - Disturbance in attention [Unknown]
  - Pain [Unknown]
  - Impaired quality of life [Unknown]
  - Anger [Unknown]
  - Condition aggravated [Unknown]
  - Nightmare [Unknown]

NARRATIVE: CASE EVENT DATE: 20150813
